FAERS Safety Report 10252297 (Version 2)
Quarter: 2014Q2

REPORT INFORMATION
  Report Type: Report from Study
  Country: NO (occurrence: NO)
  Receive Date: 20140623
  Receipt Date: 20140623
  Transmission Date: 20141212
  Serious: Yes (Hospitalization)
  Sender: FDA-Public Use
  Company Number: PHHO2008NO13569

PATIENT
  Sex: 0

DRUGS (1)
  1. SOM230 [Suspect]
     Indication: CARCINOID TUMOUR OF THE SMALL BOWEL
     Route: 030
     Dates: start: 20081027, end: 20081119

REACTIONS (3)
  - Clostridium difficile infection [Recovering/Resolving]
  - Diarrhoea [Recovering/Resolving]
  - Weight decreased [Recovering/Resolving]
